FAERS Safety Report 19180686 (Version 1)
Quarter: 2021Q2

REPORT INFORMATION
  Report Type: Spontaneous
  Country: US (occurrence: US)
  Receive Date: 20210426
  Receipt Date: 20210426
  Transmission Date: 20210717
  Serious: Yes (Other)
  Sender: FDA-Public Use
  Company Number: NVSC2021US091000

PATIENT
  Age: 31 Year
  Sex: Male

DRUGS (1)
  1. GABAPENTIN. [Suspect]
     Active Substance: GABAPENTIN
     Indication: BACK PAIN
     Dosage: 36 G, QD (10 TIMES THE RECOMMENDED MAXIMUM DAILY DOSE)
     Route: 065

REACTIONS (3)
  - Drug dependence [Unknown]
  - Drug withdrawal convulsions [Unknown]
  - Drug use disorder [Unknown]
